FAERS Safety Report 7339919-0 (Version None)
Quarter: 2011Q1

REPORT INFORMATION
  Report Type: 
  Country: None (occurrence: None)
  Receive Date: 20110309
  Receipt Date: 20110301
  Transmission Date: 20110831
  Serious: Yes (Death, Hospitalization, Other)
  Sender: FDA-Public Use
  Company Number: SK-ELI_LILLY_AND_COMPANY-SK201012003036

PATIENT
  Age: 81 Year
  Sex: Female

DRUGS (4)
  1. FORTEO [Suspect]
     Indication: OSTEOPOROSIS POSTMENOPAUSAL
     Dosage: 20 UG, DAILY (1/D)
     Route: 058
     Dates: start: 20100701, end: 20101108
  2. ANOPYRIN [Concomitant]
     Dosage: UNK, UNKNOWN
     Route: 048
  3. VALSARTAN [Concomitant]
     Dosage: UNK, UNKNOWN
     Route: 048
  4. AGEN [Concomitant]
     Dosage: UNK, UNKNOWN
     Route: 048

REACTIONS (2)
  - CEREBROVASCULAR ACCIDENT [None]
  - FEMORAL NECK FRACTURE [None]
